FAERS Safety Report 4573948-5 (Version None)
Quarter: 2005Q1

REPORT INFORMATION
  Report Type: 
  Country: None (occurrence: None)
  Receive Date: 20050204
  Receipt Date: 20050126
  Transmission Date: 20050727
  Serious: Yes (Hospitalization)
  Sender: FDA-Public Use
  Company Number: GXKR2005IT00511

PATIENT
  Age: 43 Year
  Sex: Female

DRUGS (4)
  1. RANITIDINE [Suspect]
     Dosage: ORAL
     Route: 048
  2. TENOXICAM                  (TENOXICAM) [Concomitant]
  3. BROMAZEPAM                  (BROMEZAPAM) [Concomitant]
  4. PROPANTHELINE                         (PROPANTHELINE) [Concomitant]

REACTIONS (8)
  - EYE DISORDER [None]
  - HYPERTENSION [None]
  - MULTIPLE SCLEROSIS [None]
  - OPTIC NEURITIS RETROBULBAR [None]
  - SCOTOMA [None]
  - VISUAL ACUITY REDUCED [None]
  - VISUAL EVOKED POTENTIALS ABNORMAL [None]
  - VISUAL FIELD DEFECT [None]
